FAERS Safety Report 10459505 (Version 1)
Quarter: 2014Q3

REPORT INFORMATION
  Report Type: Spontaneous
  Country: US (occurrence: None)
  Receive Date: 20140915
  Receipt Date: 20140915
  Transmission Date: 20150326
  Serious: Yes (Hospitalization)
  Sender: FDA-Public Use
  Company Number: ABR_01806_2014

PATIENT
  Sex: Female

DRUGS (1)
  1. GLIADEL [Suspect]
     Active Substance: CARMUSTINE
     Indication: PRODUCT USED FOR UNKNOWN INDICATION
     Dosage: DF INTRACEREBRAL
     Dates: start: 201405, end: 20140904

REACTIONS (2)
  - Implant site swelling [None]
  - Implant site cyst [None]
